FAERS Safety Report 19309474 (Version 1)
Quarter: 2021Q2

REPORT INFORMATION
  Report Type: Report from Study
  Country: US (occurrence: US)
  Receive Date: 20210525
  Receipt Date: 20210525
  Transmission Date: 20210717
  Serious: Yes (Death, Other)
  Sender: FDA-Public Use
  Company Number: US-GLAXOSMITHKLINE-US2021AMR110731

PATIENT

DRUGS (1)
  1. MEPOLIZUMAB SOLUTION FOR INJECTION IN UNSPECIFIED DEVICE [Suspect]
     Active Substance: MEPOLIZUMAB
     Indication: PRODUCT USED FOR UNKNOWN INDICATION
     Dosage: UNK
     Dates: end: 20210506

REACTIONS (1)
  - Death [Fatal]
